FAERS Safety Report 18627578 (Version 1)
Quarter: 2020Q4

REPORT INFORMATION
  Report Type: Spontaneous
  Country: FR (occurrence: FR)
  Receive Date: 20201217
  Receipt Date: 20201217
  Transmission Date: 20210114
  Serious: Yes (Other)
  Sender: FDA-Public Use
  Company Number: FR-MYLANLABS-2020M1101662

PATIENT
  Age: 64 Year
  Sex: Male
  Weight: 105.5 kg

DRUGS (6)
  1. GLUCOSE [Suspect]
     Active Substance: DEXTROSE
     Indication: INFUSION
     Dosage: UNK(INCONNUE)
     Route: 041
     Dates: start: 202010, end: 20201020
  2. NIMBEX [Suspect]
     Active Substance: CISATRACURIUM BESYLATE
     Indication: SEDATION
     Dosage: 18 MILLIGRAM, QH
     Route: 041
     Dates: start: 202010, end: 20201020
  3. MIDAZOLAM. [Suspect]
     Active Substance: MIDAZOLAM
     Indication: SEDATION
     Dosage: 12 MILLIGRAM, QH
     Route: 041
     Dates: start: 202010, end: 20201020
  4. DEXAMETHASONE. [Suspect]
     Active Substance: DEXAMETHASONE
     Indication: COVID-19
     Dosage: UNK(INCONNUE)
     Route: 041
     Dates: start: 202010, end: 20201020
  5. SUFENTANIL [Suspect]
     Active Substance: SUFENTANIL
     Indication: SEDATION
     Dosage: 10 MICROGRAM, QH
     Route: 041
     Dates: start: 202010, end: 20201020
  6. HEPARINE                           /00027701/ [Suspect]
     Active Substance: HEPARIN SODIUM
     Indication: PROPHYLAXIS
     Dosage: UNK(INCONUE)
     Route: 041
     Dates: start: 202010, end: 20201020

REACTIONS (2)
  - Skin necrosis [Recovering/Resolving]
  - Off label use [Unknown]

NARRATIVE: CASE EVENT DATE: 20201020
